FAERS Safety Report 6170020-8 (Version None)
Quarter: 2009Q2

REPORT INFORMATION
  Report Type: 
  Country: None (occurrence: None)
  Receive Date: 20090424
  Receipt Date: 20090417
  Transmission Date: 20091009
  Serious: Yes (Other)
  Sender: FDA-Public Use
  Company Number: 192431USA

PATIENT
  Age: 15 Year
  Sex: Female

DRUGS (1)
  1. BISOPROLOL FUMARATE [Suspect]
     Indication: DRUG USE FOR UNKNOWN INDICATION
     Dosage: 1 TAB= (5MG BISO + 12.5 MG HCT) (5 DOSAGE FORMS, ONCE)
     Route: 048

REACTIONS (2)
  - DRUG ABUSE [None]
  - OVERDOSE [None]
